FAERS Safety Report 5254880-0 (Version None)
Quarter: 2007Q1

REPORT INFORMATION
  Report Type: 
  Country: None (occurrence: None)
  Receive Date: 20070305
  Receipt Date: 20070226
  Transmission Date: 20070707
  Serious: Yes (Life-Threatening, Hospitalization, Other)
  Sender: FDA-Public Use
  Company Number: US-JNJFOC-20070206000

PATIENT
  Age: 42 Year
  Sex: Female

DRUGS (2)
  1. REMICADE [Suspect]
     Indication: RHEUMATOID ARTHRITIS
     Route: 042
  2. PREDNISONE [Concomitant]

REACTIONS (6)
  - DRY GANGRENE [None]
  - FINGER AMPUTATION [None]
  - LEG AMPUTATION [None]
  - LEGIONELLA INFECTION [None]
  - RENAL FAILURE ACUTE [None]
  - SEPTIC SHOCK [None]
